FAERS Safety Report 5504031-X (Version None)
Quarter: 2007Q4

REPORT INFORMATION
  Report Type: 
  Country: None (occurrence: None)
  Receive Date: 20071030
  Receipt Date: 20071023
  Transmission Date: 20080405
  Serious: Yes (Hospitalization)
  Sender: FDA-Public Use
  Company Number: S07-USA-05630-01

PATIENT
  Age: 53 Year
  Sex: Female

DRUGS (20)
  1. CELEXA [Suspect]
     Indication: DEPRESSION
     Dosage: 40 MG QD PO
     Route: 048
     Dates: start: 20050101, end: 20071002
  2. CELEXA [Suspect]
     Indication: DEPRESSION
     Dosage: 40 MG QD PO
     Route: 048
     Dates: start: 20071022
  3. MORPHINE [Suspect]
     Indication: PAIN
  4. ULTRACET (ACETAMINOPHEN AND TRAMADOL) [Concomitant]
  5. PERCOCET [Concomitant]
  6. TRAZODONE HCL [Concomitant]
  7. SEROQUEL [Concomitant]
  8. RESTORIL [Concomitant]
  9. KLONOPIN [Concomitant]
  10. LIDODERM [Concomitant]
  11. DEPAKOTE [Concomitant]
  12. PREDNISONE TAB [Concomitant]
  13. OXYBUTYNIN CHLORIDE [Concomitant]
  14. LOVASTATIN [Concomitant]
  15. PROTONIX [Concomitant]
  16. PRILOSEC [Concomitant]
  17. SYNTHROID [Concomitant]
  18. IRON [Concomitant]
  19. COLACE (DOCUSATE SODIUM) [Concomitant]
  20. ESTROVEN [Concomitant]

REACTIONS (5)
  - BLOOD SODIUM DECREASED [None]
  - CONFUSIONAL STATE [None]
  - FALL [None]
  - HIP FRACTURE [None]
  - VISUAL DISTURBANCE [None]
